FAERS Safety Report 18644278 (Version 1)
Quarter: 2020Q4

REPORT INFORMATION
  Report Type: Spontaneous
  Country: US (occurrence: US)
  Receive Date: 20201221
  Receipt Date: 20201221
  Transmission Date: 20210114
  Serious: Yes (Disabling, Other)
  Sender: FDA-Public Use
  Company Number: US-PURDUE-USA-2020-0184608

PATIENT
  Sex: Male

DRUGS (2)
  1. DILAUDID [Suspect]
     Active Substance: HYDROMORPHONE HYDROCHLORIDE
     Indication: PRODUCT USED FOR UNKNOWN INDICATION
     Dosage: UNKNOWN DOSAGE
     Route: 048
  2. OXYCONTIN [Suspect]
     Active Substance: OXYCODONE HYDROCHLORIDE
     Indication: PRODUCT USED FOR UNKNOWN INDICATION
     Dosage: UNKNOWN DOSAGE
     Route: 048

REACTIONS (11)
  - Drug dependence [Unknown]
  - Adrenal gland injury [Unknown]
  - Endocrine disorder [Unknown]
  - Urticaria [Unknown]
  - Disability [Unknown]
  - Depression [Unknown]
  - Peripheral swelling [Unknown]
  - Migraine [Unknown]
  - Loss of personal independence in daily activities [Unknown]
  - Androgens abnormal [Unknown]
  - Pain [Unknown]
